FAERS Safety Report 8510752 (Version 2)
Quarter: 2012Q4

REPORT INFORMATION
  Report Type: 
  Country: US (occurrence: US)
  Receive Date: 20120413
  Receipt Date: 20121221
  Transmission Date: 20130627
  Serious: No
  Sender: FDA-Public Use
  Company Number: US-PFIZER INC-2012088705

PATIENT
  Age: 67 Year
  Sex: Male
  Weight: 79.82 kg

DRUGS (5)
  1. VIAGRA [Suspect]
     Indication: ERECTILE DYSFUNCTION
     Dosage: 100 mg, as needed
     Route: 048
     Dates: start: 2010
  2. CAVERJECT [Suspect]
     Indication: ERECTILE DYSFUNCTION
     Dosage: 40 ug, as needed
     Route: 017
     Dates: start: 2010
  3. HUMALOG [Concomitant]
     Indication: DIABETES
     Dosage: 28 IU, daily
  4. NOVOLOG [Concomitant]
     Indication: DIABETES
     Dosage: 28 IU, daily
  5. METFORMIN [Concomitant]
     Indication: DIABETES
     Dosage: 1000 mg, 2x/day

REACTIONS (3)
  - Blood testosterone decreased [Recovered/Resolved]
  - Asthenia [Recovered/Resolved]
  - Sluggishness [Recovered/Resolved]
